FAERS Safety Report 16859238 (Version 1)
Quarter: 2019Q3

REPORT INFORMATION
  Report Type: Spontaneous
  Country: US (occurrence: US)
  Receive Date: 20190926
  Receipt Date: 20190926
  Transmission Date: 20191005
  Serious: Yes (Hospitalization)
  Sender: FDA-Public Use
  Company Number: US-BIOGEN-2019BI00786814

PATIENT
  Sex: Female

DRUGS (1)
  1. TECFIDERA [Suspect]
     Active Substance: DIMETHYL FUMARATE
     Indication: MULTIPLE SCLEROSIS
     Route: 065
     Dates: start: 20180314

REACTIONS (9)
  - Splenomegaly [Unknown]
  - Abdominal pain upper [Unknown]
  - Diarrhoea [Recovered/Resolved]
  - Infection [Unknown]
  - Hepatic enzyme increased [Unknown]
  - Asthenia [Unknown]
  - Central nervous system lesion [Unknown]
  - Drug ineffective [Unknown]
  - Hemiparesis [Unknown]
